FAERS Safety Report 8114772-6 (Version None)
Quarter: 2012Q1

REPORT INFORMATION
  Report Type: 
  Country: None (occurrence: None)
  Receive Date: 20120206
  Receipt Date: 20120127
  Transmission Date: 20120608
  Serious: Yes (Other)
  Sender: FDA-Public Use
  Company Number: US-US-EMD SERONO, INC.-7109812

PATIENT
  Sex: Female

DRUGS (2)
  1. REBIF [Suspect]
     Indication: PRODUCT USED FOR UNKNOWN INDICATION
     Route: 058
     Dates: start: 20070621
  2. BLOOD PRESSURE MEDICATION [Concomitant]
     Indication: BLOOD PRESSURE ABNORMAL

REACTIONS (2)
  - BLOOD PRESSURE INCREASED [None]
  - OVARIAN CYST [None]
